FAERS Safety Report 21500474 (Version 1)
Quarter: 2022Q4

REPORT INFORMATION
  Report Type: Spontaneous
  Country: CN (occurrence: CN)
  Receive Date: 20221025
  Receipt Date: 20221025
  Transmission Date: 20230113
  Serious: Yes (Life-Threatening, Hospitalization, Other)
  Sender: FDA-Public Use
  Company Number: CN-CELGENE-CHN-20200503875

PATIENT
  Age: 53 Year
  Sex: Male
  Weight: 60 kg

DRUGS (16)
  1. ABRAXANE [Suspect]
     Active Substance: PACLITAXEL
     Indication: Bronchial carcinoma
     Dosage: 170 MILLIGRAM
     Route: 042
     Dates: start: 20200417, end: 20200424
  2. ABRAXANE [Suspect]
     Active Substance: PACLITAXEL
     Dosage: 168 MILLIGRAM
     Route: 042
     Dates: start: 20200515, end: 20200515
  3. ABRAXANE [Suspect]
     Active Substance: PACLITAXEL
     Dosage: 169 MILLIGRAM
     Route: 042
     Dates: start: 20200522, end: 20200529
  4. ABRAXANE [Suspect]
     Active Substance: PACLITAXEL
     Dosage: 169 MILLIGRAM?DURATION TEXT : C3D1
     Route: 042
     Dates: start: 20200610
  5. CARBOPLATIN [Suspect]
     Active Substance: CARBOPLATIN
     Indication: Bronchial carcinoma
     Route: 042
     Dates: start: 20200417, end: 20200417
  6. CARBOPLATIN [Suspect]
     Active Substance: CARBOPLATIN
     Route: 042
     Dates: start: 20200515
  7. CARBOPLATIN [Suspect]
     Active Substance: CARBOPLATIN
     Dosage: DURATION TEXT : C3D1
     Route: 042
     Dates: start: 20200610
  8. SERPLULIMAB [Suspect]
     Active Substance: SERPLULIMAB
     Indication: Bronchial carcinoma
     Dosage: 270 MILLIGRAM
     Route: 042
     Dates: start: 20200417, end: 20200417
  9. SERPLULIMAB [Suspect]
     Active Substance: SERPLULIMAB
     Dosage: 270 MILLIGRAM
     Route: 042
     Dates: start: 20200515
  10. SERPLULIMAB [Suspect]
     Active Substance: SERPLULIMAB
     Dosage: 270 MILLIGRAM?DURATION TEXT : C3D1
     Route: 042
     Dates: start: 20200610
  11. SERPLULIMAB [Suspect]
     Active Substance: SERPLULIMAB
     Route: 065
  12. SERPLULIMAB [Suspect]
     Active Substance: SERPLULIMAB
     Route: 065
  13. SERPLULIMAB [Suspect]
     Active Substance: SERPLULIMAB
     Route: 065
  14. GLUTATHIONE [Concomitant]
     Active Substance: GLUTATHIONE
     Indication: Prophylaxis
     Dosage: .9 GRAM
     Route: 048
     Dates: start: 20200420, end: 20200424
  15. ENTECAVIR [Concomitant]
     Active Substance: ENTECAVIR
     Indication: Prophylaxis
     Dosage: .5 MILLIGRAM
     Route: 048
     Dates: start: 20200304
  16. OXYCODONE AND ACETAMINOPHEN [Concomitant]
     Active Substance: ACETAMINOPHEN\OXYCODONE HYDROCHLORIDE
     Indication: Product used for unknown indication
     Dosage: 20 MILLIGRAM
     Route: 065
     Dates: start: 20200424, end: 20200501

REACTIONS (2)
  - Pericardial effusion [Recovered/Resolved]
  - Abdominal distension [Recovered/Resolved]

NARRATIVE: CASE EVENT DATE: 20200426
